FAERS Safety Report 16537851 (Version 1)
Quarter: 2019Q3

REPORT INFORMATION
  Report Type: Spontaneous
  Country: FR (occurrence: FR)
  Receive Date: 20190708
  Receipt Date: 20190708
  Transmission Date: 20191004
  Serious: Yes (Other)
  Sender: FDA-Public Use
  Company Number: FR-SA-2019SA177319

PATIENT
  Age: 71 Year
  Sex: Female

DRUGS (11)
  1. MELATONIN [Suspect]
     Active Substance: MELATONIN
     Dosage: UNK UNK, UNK
  2. TRIATEC [RAMIPRIL] [Suspect]
     Active Substance: RAMIPRIL
     Indication: HYPERTENSION
     Dosage: UNK UNK, UNK
  3. PHYSIOTENS [Concomitant]
     Active Substance: MOXONIDINE
     Dosage: 0.4 MG, UNK
  4. GELSEMIUM [Concomitant]
     Active Substance: GELSEMIUM SEMPERVIRENS ROOT
  5. VALERIAN [VALERIANA OFFICINALIS] [Concomitant]
  6. SPIRONOLACTONE. [Suspect]
     Active Substance: SPIRONOLACTONE
     Dosage: UNK UNK, UNK
  7. TURMERIC [CURCUMA LONGA] [Concomitant]
  8. NEBIVOLOL HYDROCHLORIDE [Suspect]
     Active Substance: NEBIVOLOL HYDROCHLORIDE
     Dosage: UNK UNK, UNK
  9. VITAMIN D [VITAMIN D NOS] [Concomitant]
     Active Substance: VITAMIN D NOS
  10. SPIRONOLACTONE ALTIZIDE WINTHROP [Suspect]
     Active Substance: ALTHIAZIDE\SPIRONOLACTONE
     Dosage: UNK UNK, UNK
  11. MAGNESIUM [Concomitant]
     Active Substance: MAGNESIUM

REACTIONS (9)
  - Hypotension [Unknown]
  - Headache [Unknown]
  - Drug intolerance [Unknown]
  - Myocardial infarction [Unknown]
  - Acne [Unknown]
  - Malaise [Unknown]
  - Insomnia [Unknown]
  - Rash [Unknown]
  - Sleep apnoea syndrome [Unknown]
